FAERS Safety Report 7789455-2 (Version None)
Quarter: 2011Q3

REPORT INFORMATION
  Report Type: 
  Country: None (occurrence: None)
  Receive Date: 20110930
  Receipt Date: 20110921
  Transmission Date: 20111222
  Serious: Yes (Other)
  Sender: FDA-Public Use
  Company Number: DE-TEVA-302015GER

PATIENT
  Age: 55 Year
  Sex: Female
  Weight: 74 kg

DRUGS (1)
  1. DOXYCYCLINE [Suspect]
     Indication: PAIN
     Route: 048
     Dates: start: 20110326, end: 20110327

REACTIONS (1)
  - PEMPHIGOID [None]
